FAERS Safety Report 5972867-7 (Version None)
Quarter: 2008Q4

REPORT INFORMATION
  Report Type: 
  Country: None (occurrence: None)
  Receive Date: 20081126
  Receipt Date: 20081126
  Transmission Date: 20090506
  Serious: Yes (Life-Threatening, Hospitalization)
  Sender: FDA-Public Use
  Company Number: None

PATIENT
  Age: 92 Year
  Sex: Male
  Weight: 70.3075 kg

DRUGS (1)
  1. IMDUR NOT SURE ETHEX [Suspect]
     Indication: ANGINA PECTORIS
     Dosage: (DURATION: TAKEN ONCE )
     Dates: start: 20080910

REACTIONS (4)
  - BLOOD PRESSURE DECREASED [None]
  - INCORRECT DOSE ADMINISTERED [None]
  - LOSS OF CONSCIOUSNESS [None]
  - PRODUCT QUALITY ISSUE [None]
